FAERS Safety Report 6087964-8 (Version None)
Quarter: 2009Q1

REPORT INFORMATION
  Report Type: 
  Country: None (occurrence: None)
  Receive Date: 20090210
  Receipt Date: 20090204
  Transmission Date: 20090719
  Serious: Yes (Other)
  Sender: FDA-Public Use
  Company Number: A0766487A

PATIENT
  Age: 55 Year
  Sex: Male

DRUGS (1)
  1. UREA HYDROGEN PEROXIDE (FORMULATION UNKNOWN) (UREA HYDROGEN PEROXIDE) [Suspect]
     Dosage: AURAL

REACTIONS (4)
  - DEAFNESS [None]
  - DRUG INEFFECTIVE [None]
  - EAR DISCOMFORT [None]
  - INTENTIONAL DRUG MISUSE [None]
